FAERS Safety Report 6031856-7 (Version None)
Quarter: 2009Q1

REPORT INFORMATION
  Report Type: 
  Country: None (occurrence: None)
  Receive Date: 20090108
  Receipt Date: 20081227
  Transmission Date: 20090719
  Serious: Yes (Other)
  Sender: FDA-Public Use
  Company Number: US-PFIZER INC-2008159615

PATIENT

DRUGS (6)
  1. LYRICA [Suspect]
     Indication: FIBROMYALGIA
     Dosage: 75 MG, 3X/DAY
     Dates: start: 20081001
  2. LYRICA [Suspect]
     Indication: COMPLEX REGIONAL PAIN SYNDROME
  3. WELLBUTRIN [Suspect]
     Dates: end: 20080101
  4. VERAPAMIL HYDROCHLORIDE [Concomitant]
     Dosage: UNK
  5. PROTONIX [Concomitant]
     Dosage: UNK
  6. HYDROCODONE [Concomitant]
     Dosage: UNK

REACTIONS (22)
  - BREAST PAIN [None]
  - BREAST SWELLING [None]
  - BREAST TENDERNESS [None]
  - CHEST DISCOMFORT [None]
  - DYSPNOEA [None]
  - EAR DISCOMFORT [None]
  - EYE DISCHARGE [None]
  - EYE SWELLING [None]
  - HYPERSENSITIVITY [None]
  - INCREASED VISCOSITY OF BRONCHIAL SECRETION [None]
  - LYMPHADENOPATHY [None]
  - NASAL CONGESTION [None]
  - NECK PAIN [None]
  - OROPHARYNGEAL PAIN [None]
  - PAIN [None]
  - PARAESTHESIA [None]
  - PARAESTHESIA MUCOSAL [None]
  - PHARYNGEAL OEDEMA [None]
  - RASH [None]
  - RHINALGIA [None]
  - RHINORRHOEA [None]
  - SWELLING FACE [None]
